FAERS Safety Report 18258497 (Version 1)
Quarter: 2020Q3

REPORT INFORMATION
  Report Type: Spontaneous
  Country: US (occurrence: US)
  Receive Date: 20200911
  Receipt Date: 20200911
  Transmission Date: 20201103
  Serious: No
  Sender: FDA-Public Use
  Company Number: US-PFIZER INC-2020347911

PATIENT
  Age: 10 Year
  Sex: Male

DRUGS (1)
  1. GENOTROPIN [Suspect]
     Active Substance: SOMATROPIN
     Dosage: 5 MG CARTRIDGE, 0.2 MG 6 DAYS A WEEK
     Dates: start: 201701

REACTIONS (2)
  - Skin odour abnormal [Unknown]
  - Weight increased [Unknown]
